FAERS Safety Report 16547032 (Version 1)
Quarter: 2019Q3

REPORT INFORMATION
  Report Type: Spontaneous
  Country: GB (occurrence: GB)
  Receive Date: 20190709
  Receipt Date: 20190709
  Transmission Date: 20191004
  Serious: Yes (Other)
  Sender: FDA-Public Use
  Company Number: GB-TEVA-2019-GB-1074166

PATIENT
  Age: 20 Year
  Sex: Female

DRUGS (2)
  1. AMOXICILLIN. [Suspect]
     Active Substance: AMOXICILLIN
     Indication: TONSILLITIS
     Route: 048
     Dates: start: 20190523, end: 20190524
  2. PHENOXYMETHYLPENICILLIN [Suspect]
     Active Substance: PENICILLIN V
     Indication: TONSILLITIS
     Dosage: INBETWEEN FOODS
     Route: 048
     Dates: start: 20190521, end: 20190523

REACTIONS (5)
  - Pruritus [Unknown]
  - Blister [Unknown]
  - Rash generalised [Recovered/Resolved]
  - Papule [Unknown]
  - Pain [Unknown]
